FAERS Safety Report 6111880-6 (Version None)
Quarter: 2009Q1

REPORT INFORMATION
  Report Type: 
  Country: None (occurrence: None)
  Receive Date: 20090311
  Receipt Date: 20090227
  Transmission Date: 20090719
  Serious: Yes (Hospitalization)
  Sender: FDA-Public Use
  Company Number: US-WATSON-2009-01137

PATIENT
  Age: 94 Year
  Sex: Female

DRUGS (1)
  1. FERRLECIT [Suspect]
     Indication: IRON DEFICIENCY
     Dosage: 250 MG, SINGLE, OVER 2 HOURS
     Route: 042
     Dates: start: 20090212, end: 20090212

REACTIONS (3)
  - BLOOD PRESSURE DECREASED [None]
  - NAUSEA [None]
  - VOMITING [None]
